FAERS Safety Report 19317607 (Version 1)
Quarter: 2021Q2

REPORT INFORMATION
  Report Type: Spontaneous
  Country: US (occurrence: US)
  Receive Date: 20210527
  Receipt Date: 20210527
  Transmission Date: 20210717
  Serious: Yes (Death)
  Sender: FDA-Public Use
  Company Number: US-ROCHE-2838141

PATIENT
  Age: 72 Year
  Sex: Female

DRUGS (13)
  1. POTASSIUM CHLORIDE ER [Concomitant]
     Active Substance: POTASSIUM CHLORIDE
  2. VITAMIN B1 [Concomitant]
     Active Substance: THIAMINE HYDROCHLORIDE
  3. ESBRIET [Suspect]
     Active Substance: PIRFENIDONE
     Indication: IDIOPATHIC PULMONARY FIBROSIS
     Route: 048
     Dates: start: 20170725, end: 202105
  4. CARVEDILOL. [Concomitant]
     Active Substance: CARVEDILOL
  5. COREG [Concomitant]
     Active Substance: CARVEDILOL
  6. FOSAMAX [Concomitant]
     Active Substance: ALENDRONATE SODIUM
  7. GABAPENTIN. [Concomitant]
     Active Substance: GABAPENTIN
  8. NEURONTIN [Concomitant]
     Active Substance: GABAPENTIN
  9. MOBIC [Concomitant]
     Active Substance: MELOXICAM
  10. MONTELUKAST [Concomitant]
     Active Substance: MONTELUKAST SODIUM
  11. CETIRIZINE [Concomitant]
     Active Substance: CETIRIZINE HYDROCHLORIDE
  12. HYDROCHLOROTH [Concomitant]
     Active Substance: HYDROCHLOROTHIAZIDE
  13. MEGESTROL ACETATE. [Concomitant]
     Active Substance: MEGESTROL ACETATE

REACTIONS (1)
  - Death [Fatal]

NARRATIVE: CASE EVENT DATE: 202105
